FAERS Safety Report 5413407-0 (Version None)
Quarter: 2007Q3

REPORT INFORMATION
  Report Type: 
  Country: None (occurrence: None)
  Receive Date: 20070810
  Receipt Date: 20070801
  Transmission Date: 20080115
  Serious: Yes (Other)
  Sender: FDA-Public Use
  Company Number: 2007-02334

PATIENT
  Sex: Male

DRUGS (1)
  1. VELCADE [Suspect]
     Indication: MULTIPLE MYELOMA

REACTIONS (6)
  - ALLERGY TO CHEMICALS [None]
  - ARTHRALGIA [None]
  - HYPERSENSITIVITY [None]
  - PAIN IN EXTREMITY [None]
  - VISION BLURRED [None]
  - VISUAL ACUITY REDUCED [None]
